FAERS Safety Report 16767915 (Version 1)
Quarter: 2019Q3

REPORT INFORMATION
  Report Type: Spontaneous
  Country: US (occurrence: US)
  Receive Date: 20190903
  Receipt Date: 20190903
  Transmission Date: 20191005
  Serious: Yes (Other)
  Sender: FDA-Public Use
  Company Number: US-BAYER-2019-161105

PATIENT
  Age: 60 Year
  Sex: Female

DRUGS (1)
  1. INTERFERON BETA - 1B [Suspect]
     Active Substance: INTERFERON BETA-1B
     Indication: MALIGNANT MELANOMA STAGE III
     Route: 065

REACTIONS (4)
  - Malignant neoplasm progression [None]
  - Off label use [None]
  - Product use in unapproved indication [None]
  - Malignant melanoma stage III [None]
